FAERS Safety Report 6043589-1 (Version None)
Quarter: 2009Q1

REPORT INFORMATION
  Report Type: 
  Country: None (occurrence: None)
  Receive Date: 20090115
  Receipt Date: 20090115
  Transmission Date: 20090719
  Serious: Yes (Hospitalization)
  Sender: FDA-Public Use
  Company Number: None

PATIENT
  Age: 77 Year
  Sex: Female
  Weight: 47 kg

DRUGS (11)
  1. LISINOPRIL [Suspect]
     Indication: HYPERTENSION
     Dosage: 10MG DAILY PO
     Route: 048
  2. TRIAMTERENE AND HYDROCHLOROTHIAZIDE [Concomitant]
  3. FEXOFENADINE [Concomitant]
  4. RANITIDINE [Concomitant]
  5. FERROUS SULFATE TAB [Concomitant]
  6. CALCIUM SUPPLEMENT TABLET [Concomitant]
  7. MEGESTROL ACETATE [Concomitant]
  8. ALBUTEROL [Concomitant]
  9. FLUTICASONE/SALMETEROL [Concomitant]
  10. TIOTROPIUM INHALER [Concomitant]
  11. LIDOCAINE [Concomitant]

REACTIONS (3)
  - ANGIOEDEMA [None]
  - DYSPNOEA [None]
  - STRIDOR [None]
